FAERS Safety Report 9549042 (Version 2)
Quarter: 2013Q3

REPORT INFORMATION
  Report Type: Spontaneous
  Country: VN (occurrence: VN)
  Receive Date: 20130924
  Receipt Date: 20130924
  Transmission Date: 20140515
  Serious: Yes (Hospitalization, Other)
  Sender: FDA-Public Use
  Company Number: VN-BAXTER-2013BAX029622

PATIENT
  Sex: Male

DRUGS (1)
  1. DIANEAL LOW CALCIUM (2,5MEQ.L) PERITIONEAL DIALYSIS SOLUTION WITH 1.5% [Suspect]
     Indication: PERITONEAL DIALYSIS
     Dosage: 4 BAGS/DAY
     Route: 033
     Dates: start: 20120621

REACTIONS (2)
  - General physical health deterioration [Unknown]
  - Peritonitis [Recovered/Resolved]
